FAERS Safety Report 5498839-7 (Version None)
Quarter: 2007Q4

REPORT INFORMATION
  Report Type: 
  Country: None (occurrence: None)
  Receive Date: 20071026
  Receipt Date: 20070725
  Transmission Date: 20080405
  Serious: No
  Sender: FDA-Public Use
  Company Number: A0666333A

PATIENT
  Sex: Female

DRUGS (13)
  1. ADVAIR DISKUS 100/50 [Suspect]
     Indication: ASTHMA
     Route: 055
     Dates: start: 20030101, end: 20060101
  2. FLOVENT [Suspect]
     Indication: ASTHMA
     Route: 055
     Dates: start: 20060101
  3. ALBUTEROL [Concomitant]
  4. PRILOSEC [Concomitant]
  5. BUSPAR [Concomitant]
  6. ANTIVERT [Concomitant]
  7. UNKNOWN MEDICATION [Concomitant]
  8. ALLEGRA [Concomitant]
  9. ZOCOR [Concomitant]
  10. FLONASE [Concomitant]
  11. SINGULAIR [Concomitant]
  12. CLINORIL [Concomitant]
  13. PREMARIN [Concomitant]

REACTIONS (2)
  - COUGH [None]
  - ORAL CANDIDIASIS [None]
